FAERS Safety Report 21531243 (Version 1)
Quarter: 2022Q4

REPORT INFORMATION
  Report Type: Spontaneous
  Country: US (occurrence: None)
  Receive Date: 20221028
  Receipt Date: 20221028
  Transmission Date: 20230113
  Serious: No
  Sender: FDA-Public Use
  Company Number: None

PATIENT

DRUGS (5)
  1. SODIUM CHLORIDE [Suspect]
     Active Substance: SODIUM CHLORIDE
     Indication: Product used for unknown indication
     Dosage: FREQUENCY : TWICE A DAY;?
     Route: 048
     Dates: start: 20220901, end: 20220920
  2. VITAMIN D3 2000 [Concomitant]
  3. LOW DOSE ASPIRIN [Concomitant]
     Active Substance: ASPIRIN
  4. PLAVIX [Concomitant]
     Active Substance: CLOPIDOGREL BISULFATE
  5. LOVASTATIN [Concomitant]
     Active Substance: LOVASTATIN
     Indication: Lethargy

REACTIONS (4)
  - Rash [None]
  - Pruritus [None]
  - Anaphylactic reaction [None]
  - Therapy change [None]

NARRATIVE: CASE EVENT DATE: 20221011
